FAERS Safety Report 4825509-8 (Version None)
Quarter: 2005Q4

REPORT INFORMATION
  Report Type: 
  Country: None (occurrence: None)
  Receive Date: 20051111
  Receipt Date: 20051010
  Transmission Date: 20060501
  Serious: Yes (Life-Threatening)
  Sender: FDA-Public Use
  Company Number: 2005AP05738

PATIENT
  Age: 27712 Day
  Sex: Female
  Weight: 79 kg

DRUGS (2)
  1. XYLOCAINE W/ EPINEPHRINE [Suspect]
     Route: 053
     Dates: start: 20050614, end: 20050614
  2. HYALASE [Suspect]
     Route: 023
     Dates: start: 20050614, end: 20050614

REACTIONS (6)
  - BRADYCARDIA [None]
  - DIZZINESS [None]
  - DYSPNOEA [None]
  - ERYTHEMA [None]
  - EYE SWELLING [None]
  - HYPOTENSION [None]
